FAERS Safety Report 4504320-1 (Version None)
Quarter: 2004Q4

REPORT INFORMATION
  Report Type: 
  Country: None (occurrence: None)
  Receive Date: 20041118
  Receipt Date: 20041105
  Transmission Date: 20050328
  Serious: Yes (Hospitalization)
  Sender: FDA-Public Use
  Company Number: 200418619US

PATIENT
  Sex: Female

DRUGS (2)
  1. KETEK [Suspect]
     Indication: BRONCHITIS
     Route: 048
     Dates: start: 20041102, end: 20041104
  2. PHENERGAN EXPECTORANT W/ CODEINE [Concomitant]

REACTIONS (9)
  - ASTHMA [None]
  - BLOOD PRESSURE INCREASED [None]
  - BODY TEMPERATURE INCREASED [None]
  - HALLUCINATION [None]
  - MENTAL STATUS CHANGES [None]
  - OXYGEN SATURATION DECREASED [None]
  - SYNCOPE [None]
  - TACHYCARDIA [None]
  - WHEEZING [None]
